FAERS Safety Report 7413575-5 (Version None)
Quarter: 2011Q2

REPORT INFORMATION
  Report Type: 
  Country: None (occurrence: None)
  Receive Date: 20110413
  Receipt Date: 20110216
  Transmission Date: 20111010
  Serious: No
  Sender: FDA-Public Use
  Company Number: US-B.I. PHARMACEUTICALS,INC./RIDGEFIELD-2011-BP-03290BP

PATIENT
  Age: 80 Year
  Sex: Female

DRUGS (3)
  1. PRADAXA [Suspect]
     Indication: ATRIAL FIBRILLATION
     Dosage: 300 MG
     Route: 048
     Dates: start: 20110215, end: 20110215
  2. PRADAXA [Suspect]
     Indication: PROPHYLAXIS
  3. SYNTHROID [Concomitant]

REACTIONS (3)
  - DIARRHOEA [None]
  - ASTHENIA [None]
  - VOMITING [None]
